FAERS Safety Report 9526049 (Version 1)
Quarter: 2013Q1

REPORT INFORMATION
  Report Type: Spontaneous
  Country: US (occurrence: None)
  Receive Date: 20130314
  Receipt Date: 20130314
  Transmission Date: 20140127
  Serious: No
  Sender: FDA-Public Use
  Company Number: 1302USA001926

PATIENT
  Age: 50 Year
  Sex: Female

DRUGS (3)
  1. VICTRELIS [Suspect]
     Indication: HEPATITIS C
     Dosage: UNK, ORAL
     Route: 048
     Dates: start: 201301
  2. PEGINTRON [Suspect]
     Indication: HEPATITIS C
     Dates: start: 201301
  3. RIBAVIRIN (RIBAVIRIN) TABLET, 200 MG [Suspect]
     Indication: HEPATITIS C
     Dates: start: 201301

REACTIONS (1)
  - Palpitations [None]
